FAERS Safety Report 9578312 (Version 1)
Quarter: 2013Q4

REPORT INFORMATION
  Report Type: Spontaneous
  Country: US (occurrence: US)
  Receive Date: 20131001
  Receipt Date: 20131001
  Transmission Date: 20140711
  Serious: Yes (Hospitalization)
  Sender: FDA-Public Use
  Company Number: US-AMGEN-USASP2013012576

PATIENT
  Age: 50 Year
  Sex: Male
  Weight: 119.73 kg

DRUGS (3)
  1. ENBREL [Suspect]
     Indication: PSORIATIC ARTHROPATHY
     Dosage: 50 MG, QWK
     Route: 058
  2. METFORMIN [Concomitant]
     Dosage: 500 MG, UNK
  3. ALTACE [Concomitant]
     Dosage: 1.25 MG, UNK

REACTIONS (3)
  - Cellulitis [Unknown]
  - Influenza [Unknown]
  - Malaise [Unknown]
